FAERS Safety Report 11022526 (Version 1)
Quarter: 2015Q2

REPORT INFORMATION
  Report Type: Report from Study
  Country: JP (occurrence: JP)
  Receive Date: 20150413
  Receipt Date: 20150413
  Transmission Date: 20150821
  Serious: Yes (Hospitalization)
  Sender: FDA-Public Use
  Company Number: JP-CELGENE-JPN-2015041009

PATIENT
  Age: 78 Year
  Sex: Male
  Weight: 62 kg

DRUGS (14)
  1. VIDAZA [Suspect]
     Active Substance: AZACITIDINE
     Route: 058
     Dates: start: 20120618, end: 20120624
  2. CEFXONE [Concomitant]
     Active Substance: CEFTRIAXONE
     Indication: PRODUCT USED FOR UNKNOWN INDICATION
     Route: 065
     Dates: start: 20120628, end: 20120704
  3. CEFXONE [Concomitant]
     Active Substance: CEFTRIAXONE
     Route: 065
     Dates: start: 20120824, end: 20120827
  4. MEROPEN [Concomitant]
     Active Substance: MEROPENEM
     Indication: PRODUCT USED FOR UNKNOWN INDICATION
     Route: 065
     Dates: start: 20120827, end: 20120830
  5. FINIBAX [Concomitant]
     Active Substance: DORIPENEM MONOHYDRATE
     Indication: PRODUCT USED FOR UNKNOWN INDICATION
     Route: 065
     Dates: start: 20120913, end: 20120922
  6. TEICOPLANIN [Concomitant]
     Active Substance: TEICOPLANIN
     Indication: PRODUCT USED FOR UNKNOWN INDICATION
     Route: 065
     Dates: start: 20120910, end: 20120922
  7. MAGNESIUM OXIDE. [Concomitant]
     Active Substance: MAGNESIUM OXIDE
     Indication: PRODUCT USED FOR UNKNOWN INDICATION
     Route: 065
     Dates: start: 20120523
  8. FLOMAX [Concomitant]
     Active Substance: TAMSULOSIN HYDROCHLORIDE
     Indication: PRODUCT USED FOR UNKNOWN INDICATION
     Route: 065
     Dates: start: 20120723, end: 20120802
  9. PREDONINE [Concomitant]
     Active Substance: PREDNISOLONE\PREDNISOLONE ACETATE\PREDNISOLONE SODIUM SUCCINATE
     Indication: PRODUCT USED FOR UNKNOWN INDICATION
     Route: 065
     Dates: start: 20120914
  10. GAMMAGARD [Concomitant]
     Active Substance: HUMAN IMMUNOGLOBULIN G
     Indication: PRODUCT USED FOR UNKNOWN INDICATION
     Route: 065
     Dates: start: 20120828, end: 20120830
  11. VIDAZA [Suspect]
     Active Substance: AZACITIDINE
     Indication: MYELODYSPLASTIC SYNDROME
     Route: 058
     Dates: start: 20120521, end: 20120527
  12. VIDAZA [Suspect]
     Active Substance: AZACITIDINE
     Route: 058
     Dates: start: 20120716, end: 20120720
  13. VIDAZA [Suspect]
     Active Substance: AZACITIDINE
     Route: 065
     Dates: start: 20120813, end: 20120817
  14. CEFEPIME [Concomitant]
     Active Substance: CEFEPIME\CEFEPIME HYDROCHLORIDE
     Indication: PRODUCT USED FOR UNKNOWN INDICATION
     Route: 065
     Dates: start: 20120903, end: 20120913

REACTIONS (2)
  - Enteritis infectious [Recovered/Resolved]
  - Panniculitis [Recovered/Resolved]

NARRATIVE: CASE EVENT DATE: 20120824
